FAERS Safety Report 24611604 (Version 1)
Quarter: 2024Q4

REPORT INFORMATION
  Report Type: Spontaneous
  Country: HR (occurrence: HR)
  Receive Date: 20241113
  Receipt Date: 20241113
  Transmission Date: 20250115
  Serious: Yes (Hospitalization, Other)
  Sender: RANBAXY
  Company Number: HR-SUN PHARMACEUTICAL INDUSTRIES LTD-2024R1-478443

PATIENT
  Age: 64 Year
  Sex: Male

DRUGS (7)
  1. AMLODIPINE [Suspect]
     Active Substance: AMLODIPINE BESYLATE
     Indication: Chronic kidney disease
     Dosage: UNK
     Route: 065
  2. CALCITRIOL [Suspect]
     Active Substance: CALCITRIOL
     Indication: Chronic kidney disease
     Dosage: UNK
     Route: 065
  3. CEFTRIAXONE [Suspect]
     Active Substance: CEFTRIAXONE
     Indication: Antibiotic therapy
     Dosage: UNK
     Route: 065
  4. FEBUXOSTAT [Suspect]
     Active Substance: FEBUXOSTAT
     Indication: Chronic kidney disease
     Dosage: UNK
     Route: 065
  5. LEVOFLOXACIN [Suspect]
     Active Substance: LEVOFLOXACIN
     Indication: Anaemia
     Dosage: UNK
     Route: 065
  6. PANTOPRAZOLE SODIUM [Suspect]
     Active Substance: PANTOPRAZOLE SODIUM
     Indication: Chronic kidney disease
     Dosage: UNK
     Route: 065
  7. SEVELAMER [Suspect]
     Active Substance: SEVELAMER
     Indication: Chronic kidney disease
     Dosage: UNK
     Route: 065

REACTIONS (1)
  - Condition aggravated [Unknown]
